FAERS Safety Report 4418284-2 (Version None)
Quarter: 2004Q3

REPORT INFORMATION
  Report Type: 
  Country: None (occurrence: None)
  Receive Date: 20040805
  Receipt Date: 20040805
  Transmission Date: 20050211
  Serious: Yes (Hospitalization)
  Sender: FDA-Public Use
  Company Number: None

PATIENT
  Age: 69 Year
  Sex: Male
  Weight: 92.5338 kg

DRUGS (1)
  1. CIALIS [Suspect]
     Dosage: PO

REACTIONS (5)
  - ALCOHOL USE [None]
  - FACE INJURY [None]
  - FALL [None]
  - LACERATION [None]
  - MARKEDLY REDUCED DIETARY INTAKE [None]
